FAERS Safety Report 6957034-2 (Version None)
Quarter: 2010Q3

REPORT INFORMATION
  Report Type: 
  Country: None (occurrence: None)
  Receive Date: 20100827
  Receipt Date: 20100827
  Transmission Date: 20110219
  Serious: No
  Sender: FDA-Public Use
  Company Number: None

PATIENT
  Age: 61 Year
  Sex: Female
  Weight: 62.7 kg

DRUGS (1)
  1. SPIRIVA [Suspect]
     Indication: CHRONIC OBSTRUCTIVE PULMONARY DISEASE
     Dosage: SPIRIVA 18 MCG ONCE DAILY INHALED
     Route: 055
     Dates: start: 20100501, end: 20100601

REACTIONS (1)
  - PRODUCT QUALITY ISSUE [None]
